FAERS Safety Report 7835483-8 (Version None)
Quarter: 2011Q4

REPORT INFORMATION
  Report Type: 
  Country: None (occurrence: None)
  Receive Date: 20111024
  Receipt Date: 20111018
  Transmission Date: 20120403
  Serious: Yes (Hospitalization)
  Sender: FDA-Public Use
  Company Number: JP-BAYER-2011-081501

PATIENT
  Age: 67 Year
  Sex: Male

DRUGS (2)
  1. NEXAVAR [Suspect]
     Indication: HEPATIC NEOPLASM MALIGNANT
     Dosage: 400 MG, QD
     Route: 048
     Dates: start: 20110712, end: 20110925
  2. NEXAVAR [Suspect]
     Dosage: 200 MG, QD
     Route: 048
     Dates: start: 20110926

REACTIONS (3)
  - HEPATIC FUNCTION ABNORMAL [None]
  - JAUNDICE [None]
  - PLATELET COUNT DECREASED [None]
